FAERS Safety Report 20628377 (Version 1)
Quarter: 2022Q1

REPORT INFORMATION
  Report Type: Spontaneous
  Country: IN (occurrence: IN)
  Receive Date: 20220323
  Receipt Date: 20220323
  Transmission Date: 20220423
  Serious: Yes (Other)
  Sender: FDA-Public Use
  Company Number: IN-LUPIN PHARMACEUTICALS INC.-2022-04073

PATIENT
  Age: 48 Year
  Sex: Male

DRUGS (1)
  1. METRONIDAZOLE [Suspect]
     Active Substance: METRONIDAZOLE
     Indication: Amoebiasis
     Dosage: 800 MG, TID (HE WAS PRESCRIBED METRONIDAZOLE 800MG THREE TIMES A DAY FOR 2 WEEKS)
     Route: 065

REACTIONS (4)
  - Peripheral sensorimotor neuropathy [Recovering/Resolving]
  - Polyneuropathy [Recovering/Resolving]
  - Brain oedema [Recovered/Resolved]
  - Intentional product misuse [Unknown]
